FAERS Safety Report 26100509 (Version 2)
Quarter: 2025Q4

REPORT INFORMATION
  Report Type: Spontaneous
  Country: JP (occurrence: JP)
  Receive Date: 20251128
  Receipt Date: 20251226
  Transmission Date: 20260118
  Serious: Yes (Other)
  Sender: BRISTOL-MYERS SQUIBB COMPANY
  Company Number: JP-BRISTOL-MYERS SQUIBB COMPANY-2025-149330

PATIENT
  Age: 58 Year
  Sex: Female

DRUGS (4)
  1. CAMZYOS [Suspect]
     Active Substance: MAVACAMTEN
     Indication: Hypertrophic cardiomyopathy
     Dosage: 14 DAYS
     Route: 048
     Dates: start: 20251014
  2. CIFENLINE [Concomitant]
     Active Substance: CIFENLINE
     Indication: Product used for unknown indication
     Route: 048
  3. CARVEDILOL [Concomitant]
     Active Substance: CARVEDILOL
     Indication: Product used for unknown indication
     Route: 048
  4. FUROSEMIDE [Concomitant]
     Active Substance: FUROSEMIDE
     Indication: Product used for unknown indication
     Route: 048

REACTIONS (1)
  - Gastritis erosive [Recovered/Resolved]

NARRATIVE: CASE EVENT DATE: 20251028
